FAERS Safety Report 11287589 (Version 1)
Quarter: 2015Q3

REPORT INFORMATION
  Report Type: Spontaneous
  Country: US (occurrence: None)
  Receive Date: 20150720
  Receipt Date: 20150720
  Transmission Date: 20151125
  Serious: Yes (Other)
  Sender: FDA-Public Use
  Company Number: None

PATIENT
  Age: 38 Year
  Sex: Female

DRUGS (2)
  1. CELEXA [Suspect]
     Active Substance: CITALOPRAM HYDROBROMIDE
     Indication: ANXIETY
     Dosage: CELEXA ONCE DAILY TAKEN BY MOUTH
     Route: 048
     Dates: start: 20150701, end: 20150711
  2. AMOUR THYRIOD [Concomitant]

REACTIONS (1)
  - Lymphadenopathy [None]

NARRATIVE: CASE EVENT DATE: 20150708
